FAERS Safety Report 10992950 (Version 2)
Quarter: 2015Q2

REPORT INFORMATION
  Report Type: Spontaneous
  Country: US (occurrence: US)
  Receive Date: 20150406
  Receipt Date: 20150525
  Transmission Date: 20150821
  Serious: No
  Sender: FDA-Public Use
  Company Number: US-JNJFOC-20140212732

PATIENT
  Age: 68 Year
  Sex: Male
  Weight: 65.9 kg

DRUGS (12)
  1. REMICADE [Suspect]
     Active Substance: INFLIXIMAB
     Indication: COLITIS ULCERATIVE
     Route: 042
  2. REMICADE [Suspect]
     Active Substance: INFLIXIMAB
     Indication: COLONIC FISTULA
     Route: 042
     Dates: start: 20140205
  3. REMICADE [Suspect]
     Active Substance: INFLIXIMAB
     Indication: ANAL STENOSIS
     Route: 042
  4. PENTASA [Concomitant]
     Active Substance: MESALAMINE
     Indication: COLITIS ULCERATIVE
     Route: 065
  5. ASPIRIN. [Concomitant]
     Active Substance: ASPIRIN
     Route: 065
  6. REMICADE [Suspect]
     Active Substance: INFLIXIMAB
     Indication: COLITIS ULCERATIVE
     Route: 042
     Dates: start: 20140205
  7. REMICADE [Suspect]
     Active Substance: INFLIXIMAB
     Indication: COLITIS ULCERATIVE
     Route: 042
     Dates: start: 20140219
  8. REMICADE [Suspect]
     Active Substance: INFLIXIMAB
     Indication: ANAL STENOSIS
     Route: 042
     Dates: start: 20140205
  9. REMICADE [Suspect]
     Active Substance: INFLIXIMAB
     Indication: ANAL STENOSIS
     Route: 042
     Dates: start: 20140219
  10. REMICADE [Suspect]
     Active Substance: INFLIXIMAB
     Indication: COLONIC FISTULA
     Route: 042
  11. REMICADE [Suspect]
     Active Substance: INFLIXIMAB
     Indication: COLONIC FISTULA
     Route: 042
     Dates: start: 20140219
  12. SOLU-MEDROL [Concomitant]
     Active Substance: METHYLPREDNISOLONE SODIUM SUCCINATE
     Indication: PREMEDICATION
     Route: 065
     Dates: start: 20140219

REACTIONS (6)
  - Hypertension [Recovered/Resolved]
  - Flushing [Recovered/Resolved]
  - Palpitations [Recovered/Resolved]
  - Hyperhidrosis [Recovered/Resolved]
  - Infusion related reaction [Recovered/Resolved]
  - Paraesthesia [Recovered/Resolved]

NARRATIVE: CASE EVENT DATE: 20140219
